FAERS Safety Report 5457909-X (Version None)
Quarter: 2007Q3

REPORT INFORMATION
  Report Type: 
  Country: None (occurrence: None)
  Receive Date: 20070918
  Receipt Date: 20070913
  Transmission Date: 20080115
  Serious: Yes (Death)
  Sender: FDA-Public Use
  Company Number: RO-ABBOTT-07P-135-0417172-00

PATIENT
  Age: 17 Year
  Sex: Female
  Weight: 49 kg

DRUGS (10)
  1. KALETRA [Suspect]
     Indication: ACQUIRED IMMUNODEFICIENCY SYNDROME
     Route: 048
     Dates: start: 20070720, end: 20070901
  2. LAMIVUDINE + ZIDOVUDINE [Concomitant]
     Indication: ACQUIRED IMMUNODEFICIENCY SYNDROME
     Route: 048
     Dates: start: 20070720, end: 20070904
  3. FLUCONAZOLAM [Concomitant]
     Indication: FUNGAL INFECTION
     Route: 042
     Dates: start: 20070713, end: 20070904
  4. TRIMETOPRIM/COTRIMOXAZOL [Concomitant]
     Indication: TOXOPLASMOSIS
     Route: 042
     Dates: start: 20070713, end: 20070904
  5. CLARITHROMYCIN [Concomitant]
     Indication: DRUG USE FOR UNKNOWN INDICATION
     Route: 042
     Dates: start: 20070713, end: 20070904
  6. CASPOFUNGIN [Concomitant]
     Indication: FUNGAL INFECTION
     Route: 042
     Dates: start: 20070713, end: 20070904
  7. CEFTAZIDIN [Concomitant]
     Indication: DRUG USE FOR UNKNOWN INDICATION
     Route: 042
     Dates: start: 20070713, end: 20070904
  8. DEXAMETHASONE 0.5MG TAB [Concomitant]
     Indication: DRUG USE FOR UNKNOWN INDICATION
     Route: 042
     Dates: start: 20070713, end: 20070904
  9. AMIKACIN [Concomitant]
     Indication: DRUG USE FOR UNKNOWN INDICATION
     Route: 042
     Dates: start: 20070713, end: 20070904
  10. MANITOL [Concomitant]
     Indication: DRUG USE FOR UNKNOWN INDICATION
     Route: 042
     Dates: start: 20070713, end: 20070904

REACTIONS (1)
  - CARDIO-RESPIRATORY ARREST [None]
